FAERS Safety Report 21712575 (Version 1)
Quarter: 2022Q4

REPORT INFORMATION
  Report Type: Spontaneous
  Country: US (occurrence: US)
  Receive Date: 20221212
  Receipt Date: 20221212
  Transmission Date: 20230112
  Serious: Yes (Other)
  Sender: FDA-Public Use
  Company Number: US-BAYER-2022A166027

PATIENT
  Age: 74 Year
  Sex: Female

DRUGS (1)
  1. ALKA-SELTZER DAY COLD [Suspect]
     Active Substance: ACETAMINOPHEN\DEXTROMETHORPHAN HYDROBROMIDE\PHENYLEPHRINE HYDROCHLORIDE
     Indication: Sinus headache
     Dosage: 1 DF
     Route: 048
     Dates: start: 20221130, end: 20221130

REACTIONS (2)
  - Foreign body in throat [Recovered/Resolved]
  - Vomiting [None]
